FAERS Safety Report 7866280-5 (Version None)
Quarter: 2011Q4

REPORT INFORMATION
  Report Type: 
  Country: None (occurrence: None)
  Receive Date: 20111028
  Receipt Date: 20110524
  Transmission Date: 20120403
  Serious: No
  Sender: FDA-Public Use
  Company Number: US-GLAXOSMITHKLINE-A0928952A

PATIENT
  Age: 78 Year
  Sex: Female

DRUGS (9)
  1. VITAMIN-MINERAL COMPOUND TAB [Concomitant]
  2. PHENOBARBITAL TAB [Concomitant]
  3. COLCHICINE [Concomitant]
  4. ACTONEL [Concomitant]
  5. ALLOPURINOL [Concomitant]
  6. BENICAR [Concomitant]
  7. ADVAIR DISKUS 100/50 [Suspect]
     Indication: CHRONIC OBSTRUCTIVE PULMONARY DISEASE
     Dosage: 1PUFF TWICE PER DAY
     Route: 055
  8. DILTIAZEM HCL [Concomitant]
  9. FUROSEMIDE [Concomitant]

REACTIONS (3)
  - PHARYNGITIS STREPTOCOCCAL [None]
  - DYSPHONIA [None]
  - BRONCHITIS [None]
